FAERS Safety Report 5840045-8 (Version None)
Quarter: 2008Q3

REPORT INFORMATION
  Report Type: 
  Country: None (occurrence: None)
  Receive Date: 20080811
  Receipt Date: 20080805
  Transmission Date: 20090109
  Serious: Yes (Death, Life-Threatening)
  Sender: FDA-Public Use
  Company Number: JP-BAYER-200811624BYL

PATIENT
  Age: 69 Year
  Sex: Male
  Weight: 62 kg

DRUGS (3)
  1. NEXAVAR [Suspect]
     Indication: RENAL CELL CARCINOMA STAGE IV
     Dosage: TOTAL DAILY DOSE: 800 MG  UNIT DOSE: 200 MG
     Route: 048
     Dates: start: 20080707, end: 20080710
  2. BFLUID [Concomitant]
     Indication: FLUID REPLACEMENT
     Route: 041
     Dates: start: 20080706, end: 20080709
  3. SOLITA-T3 [Concomitant]
     Indication: FLUID REPLACEMENT
     Route: 041
     Dates: start: 20080706, end: 20080709

REACTIONS (3)
  - ELECTROLYTE IMBALANCE [None]
  - ILEUS [None]
  - SHOCK [None]
